FAERS Safety Report 10102930 (Version 2)
Quarter: 2014Q2

REPORT INFORMATION
  Report Type: Other
  Country: US (occurrence: US)
  Receive Date: 20140424
  Receipt Date: 20140611
  Transmission Date: 20141212
  Serious: Yes (Hospitalization, Other)
  Sender: FDA-Public Use
  Company Number: US-GSKPPD-2014GSK000036

PATIENT
  Sex: Male
  Weight: 55.6 kg

DRUGS (6)
  1. AVANDIA [Suspect]
     Indication: DIABETES MELLITUS
     Route: 048
     Dates: start: 20071207
  2. PLAVIX [Concomitant]
  3. ASPIRIN [Concomitant]
  4. VALSARTAN [Concomitant]
  5. METOPROLOL [Concomitant]
  6. NITROSTAT [Concomitant]
     Route: 060

REACTIONS (1)
  - Myocardial infarction [Recovered/Resolved]
